FAERS Safety Report 20453306 (Version 1)
Quarter: 2022Q1

REPORT INFORMATION
  Report Type: Report from Study
  Country: FR (occurrence: FR)
  Receive Date: 20220210
  Receipt Date: 20220210
  Transmission Date: 20220423
  Serious: Yes (Hospitalization)
  Sender: FDA-Public Use
  Company Number: FR-SERVIER-S22001190

PATIENT

DRUGS (4)
  1. PEGASPARGASE [Suspect]
     Active Substance: PEGASPARGASE
     Indication: Acute lymphocytic leukaemia
     Dosage: 1175 IU, D12
     Route: 042
     Dates: start: 20211208, end: 20211208
  2. TN UNSPECIFIED [Concomitant]
     Indication: Acute lymphocytic leukaemia
     Dosage: 8 MG, D24
     Route: 037
     Dates: start: 20211221, end: 20211221
  3. TN UNSPECIFIED [Concomitant]
     Indication: Acute lymphocytic leukaemia
     Dosage: 0.7 MG, D29
     Route: 042
     Dates: start: 20211224
  4. TN UNSPECIFIED [Concomitant]
     Indication: Acute lymphocytic leukaemia
     Dosage: 2 MG
     Route: 048
     Dates: start: 20211224, end: 20211229

REACTIONS (1)
  - Staphylococcal infection [Recovering/Resolving]

NARRATIVE: CASE EVENT DATE: 20220103
